FAERS Safety Report 22961877 (Version 3)
Quarter: 2025Q3

REPORT INFORMATION
  Report Type: Spontaneous
  Country: KR (occurrence: KR)
  Receive Date: 20230920
  Receipt Date: 20250902
  Transmission Date: 20251020
  Serious: Yes (Other)
  Sender: MYLAN
  Company Number: KR-MYLANLABS-2023M1098805

PATIENT
  Sex: Male

DRUGS (2)
  1. LIPITOR [Suspect]
     Active Substance: ATORVASTATIN CALCIUM
     Indication: Cerebral infarction
     Dosage: 40 MILLIGRAM, QD, (1 T EVERYDAY)
     Dates: start: 20200914, end: 20230914
  2. LIPITOR [Suspect]
     Active Substance: ATORVASTATIN CALCIUM
     Dosage: 40 MILLIGRAM, BID (19-SEPTEMBER)
     Dates: start: 20230919

REACTIONS (4)
  - Erectile dysfunction [Recovered/Resolved]
  - Micturition disorder [Recovering/Resolving]
  - Musculoskeletal stiffness [Recovering/Resolving]
  - Urethral disorder [Unknown]

NARRATIVE: CASE EVENT DATE: 20200914
